FAERS Safety Report 5486313-3 (Version None)
Quarter: 2007Q4

REPORT INFORMATION
  Report Type: 
  Country: None (occurrence: None)
  Receive Date: 20071016
  Receipt Date: 20071010
  Transmission Date: 20080405
  Serious: Yes (Death)
  Sender: FDA-Public Use
  Company Number: PHEH2007US13304

PATIENT
  Age: 71 Year
  Sex: Female

DRUGS (12)
  1. CLOZARIL [Suspect]
     Indication: MAJOR DEPRESSION
     Dosage: 1/2 A 25 MG TAB BID
     Route: 048
     Dates: start: 20040616, end: 20070820
  2. COREG [Concomitant]
  3. LASIX [Concomitant]
  4. ELAVIL [Concomitant]
  5. KLONOPIN [Concomitant]
     Indication: ANXIETY
     Dosage: 1/2 A TAB BID
     Dates: start: 20040204
  6. LORTAB [Concomitant]
  7. MAGNESIUM SULFATE [Concomitant]
  8. K-DUR 10 [Concomitant]
  9. DURAGESIC-100 [Concomitant]
  10. REGLAN [Concomitant]
  11. CHEMOTHERAPEUTICS NOS [Concomitant]
  12. AMITRIPTYLINE HCL [Concomitant]
     Indication: INSOMNIA
     Dosage: 25 MG, QHS
     Route: 048
     Dates: start: 20050711

REACTIONS (1)
  - MALIGNANT NEOPLASM PROGRESSION [None]
